FAERS Safety Report 7884765-2 (Version None)
Quarter: 2011Q4

REPORT INFORMATION
  Report Type: 
  Country: None (occurrence: None)
  Receive Date: 20111102
  Receipt Date: 20111019
  Transmission Date: 20120403
  Serious: Yes (Hospitalization, Other)
  Sender: FDA-Public Use
  Company Number: US-SANOFI-AVENTIS-2011SA070693

PATIENT
  Age: 49 Year
  Sex: Male

DRUGS (12)
  1. LOPERAMIDE HCL [Concomitant]
  2. BACLOFEN [Concomitant]
  3. DOCETAXEL [Suspect]
     Indication: LIP AND/OR ORAL CAVITY CANCER
     Route: 042
     Dates: start: 20110412, end: 20110412
  4. METOCLOPRAMIDE HYDROCHLORIDE [Concomitant]
  5. HYDROCODONE BITARTRATE [Concomitant]
  6. CISPLATIN [Suspect]
     Indication: LIP AND/OR ORAL CAVITY CANCER
     Route: 042
     Dates: start: 20110412, end: 20110412
  7. PROCHLORPERAZINE MALEATE [Concomitant]
  8. METHYLDOPA [Concomitant]
  9. DEXAMETHASONE [Concomitant]
  10. ERLOTINIB HYDROCHLORIDE [Suspect]
     Indication: LIP AND/OR ORAL CAVITY CANCER
     Route: 048
     Dates: start: 20110412, end: 20110416
  11. DILAUDID [Concomitant]
  12. ZOFRAN [Concomitant]

REACTIONS (8)
  - VOMITING [None]
  - PYREXIA [None]
  - DIARRHOEA [None]
  - DEHYDRATION [None]
  - HYPONATRAEMIA [None]
  - NAUSEA [None]
  - FATIGUE [None]
  - DECREASED APPETITE [None]
